FAERS Safety Report 6737798-3 (Version None)
Quarter: 2010Q2

REPORT INFORMATION
  Report Type: 
  Country: None (occurrence: None)
  Receive Date: 20100524
  Receipt Date: 20100420
  Transmission Date: 20101027
  Serious: Yes (Other)
  Sender: FDA-Public Use
  Company Number: US-BAYER-201018024NA

PATIENT
  Age: 75 Year
  Sex: Male
  Weight: 86 kg

DRUGS (24)
  1. MAGNEVIST [Suspect]
     Indication: IMAGING PROCEDURE
     Dates: start: 20010402, end: 20010402
  2. MAGNEVIST [Suspect]
     Dates: start: 20020711, end: 20020711
  3. OMNISCAN [Suspect]
     Indication: NUCLEAR MAGNETIC RESONANCE IMAGING
     Route: 042
     Dates: start: 20050517, end: 20050517
  4. OMNISCAN [Suspect]
     Dates: start: 20050913, end: 20050913
  5. OMNISCAN [Suspect]
     Dates: start: 20050119, end: 20050119
  6. OMNISCAN [Suspect]
     Dates: start: 20041213, end: 20041213
  7. AMIODARONE [Concomitant]
  8. PREDNISONE TAB [Concomitant]
  9. SENSIPAR [Concomitant]
  10. ASPIRIN [Concomitant]
  11. EPOGEN [Concomitant]
  12. IRON [Concomitant]
  13. NORVASC [Concomitant]
  14. RENAGEL [Concomitant]
  15. ISOSORBIDE [Concomitant]
  16. TOPROL-XL [Concomitant]
  17. PHOSLO [Concomitant]
  18. TENORMIN [Concomitant]
  19. VASOTEC [Concomitant]
  20. CARDURA [Concomitant]
  21. GLYBURIDE [Concomitant]
  22. VENOFER [Concomitant]
  23. ALTERMAGEL [Concomitant]
  24. ZEMPLAR [Concomitant]
     Dates: start: 20050726

REACTIONS (28)
  - ABASIA [None]
  - BURNING SENSATION [None]
  - DEFORMITY [None]
  - DRY SKIN [None]
  - ERYTHEMA [None]
  - ERYTHEMA INDURATUM [None]
  - EXFOLIATIVE RASH [None]
  - EXTREMITY CONTRACTURE [None]
  - GENERAL PHYSICAL HEALTH DETERIORATION [None]
  - HYPOAESTHESIA [None]
  - JOINT CONTRACTURE [None]
  - JOINT RANGE OF MOTION DECREASED [None]
  - JOINT STIFFNESS [None]
  - JOINT SWELLING [None]
  - MUSCULAR WEAKNESS [None]
  - NEPHROGENIC SYSTEMIC FIBROSIS [None]
  - OEDEMA PERIPHERAL [None]
  - PAIN [None]
  - PAIN IN EXTREMITY [None]
  - PRURITUS [None]
  - RASH [None]
  - SCAR [None]
  - SKIN EXFOLIATION [None]
  - SKIN FISSURES [None]
  - SKIN HYPERTROPHY [None]
  - SKIN INDURATION [None]
  - SKIN PLAQUE [None]
  - SKIN TIGHTNESS [None]
